FAERS Safety Report 10161387 (Version 3)
Quarter: 2014Q2

REPORT INFORMATION
  Report Type: Spontaneous
  Country: JP (occurrence: JP)
  Receive Date: 20140509
  Receipt Date: 20140605
  Transmission Date: 20141212
  Serious: Yes (Death)
  Sender: FDA-Public Use
  Company Number: JP-ROCHE-1394458

PATIENT
  Age: 66 Year
  Sex: Female
  Weight: 53 kg

DRUGS (6)
  1. HERCEPTIN [Suspect]
     Indication: BREAST CANCER METASTATIC
     Route: 041
     Dates: start: 20140425, end: 20140425
  2. PERJETA [Suspect]
     Indication: BREAST CANCER
     Route: 041
     Dates: start: 20140425, end: 20140425
  3. DOCETAXEL [Concomitant]
     Indication: BREAST CANCER METASTATIC
     Dosage: DRUG REPORTED AS: DOCETAXEL HYDRATE
     Route: 041
     Dates: start: 20140425, end: 20140425
  4. PLAVIX [Concomitant]
     Indication: PERIPHERAL ARTERIAL OCCLUSIVE DISEASE
     Route: 048
     Dates: start: 201404
  5. BAYASPIRIN [Concomitant]
     Indication: PERIPHERAL ARTERIAL OCCLUSIVE DISEASE
     Route: 048
     Dates: start: 201404
  6. DIOVAN [Concomitant]
     Indication: HYPERTENSION
     Route: 048

REACTIONS (3)
  - Breast cancer [Fatal]
  - Respiratory failure [Fatal]
  - Abdominal pain lower [Unknown]
